FAERS Safety Report 4412064-X (Version None)
Quarter: 2004Q3

REPORT INFORMATION
  Report Type: 
  Country: None (occurrence: None)
  Receive Date: 20040729
  Receipt Date: 20040729
  Transmission Date: 20050211
  Serious: No
  Sender: FDA-Public Use
  Company Number: None

PATIENT
  Age: 25 Year
  Sex: Male
  Weight: 145.151 kg

DRUGS (1)
  1. FLONASE [Suspect]
     Indication: RHINITIS ALLERGIC
     Dosage: 2 PUFFS DAILY/ 3-5  YRS

REACTIONS (6)
  - DEAFNESS [None]
  - EAR DISORDER [None]
  - MUSCLE TWITCHING [None]
  - PHARMACEUTICAL PRODUCT COMPLAINT [None]
  - SENSATION OF PRESSURE IN EAR [None]
  - TINNITUS [None]
